FAERS Safety Report 20452104 (Version 6)
Quarter: 2022Q3

REPORT INFORMATION
  Report Type: Spontaneous
  Country: JP (occurrence: JP)
  Receive Date: 20220209
  Receipt Date: 20220801
  Transmission Date: 20221027
  Serious: Yes (Life-Threatening, Hospitalization, Other)
  Sender: FDA-Public Use
  Company Number: JP-NOVARTISPH-NVSJ2021JP021475

PATIENT
  Age: 32 Year
  Sex: Female
  Weight: 47.8 kg

DRUGS (2)
  1. GILENYA [Suspect]
     Active Substance: FINGOLIMOD HYDROCHLORIDE
     Indication: Multiple sclerosis
     Dosage: 0.5 MG
     Route: 048
     Dates: start: 20130417, end: 20211126
  2. SODIUM FERROUS CITRATE [Concomitant]
     Active Substance: SODIUM FERROUS CITRATE
     Indication: Iron deficiency anaemia
     Dosage: 50 MG
     Route: 048
     Dates: start: 20201009, end: 20211021

REACTIONS (24)
  - Pneumonia aspiration [Unknown]
  - Progressive multifocal leukoencephalopathy [Not Recovered/Not Resolved]
  - Gait disturbance [Unknown]
  - Cognitive disorder [Not Recovered/Not Resolved]
  - Brain stem syndrome [Unknown]
  - Dysarthria [Unknown]
  - Spinocerebellar disorder [Unknown]
  - Dyslalia [Unknown]
  - Lymphocyte count decreased [Unknown]
  - Cough [Unknown]
  - Hypoaesthesia oral [Unknown]
  - Muscular weakness [Unknown]
  - Extensor plantar response [Unknown]
  - Reflexes abnormal [Unknown]
  - Communication disorder [Unknown]
  - Nystagmus [Unknown]
  - Hyporesponsive to stimuli [Unknown]
  - Dysphagia [Unknown]
  - Ataxia [Unknown]
  - Monoplegia [Unknown]
  - Movement disorder [Unknown]
  - Immune reconstitution inflammatory syndrome [Unknown]
  - Hypoaesthesia [Unknown]
  - Fall [Unknown]

NARRATIVE: CASE EVENT DATE: 20130401
